FAERS Safety Report 15845832 (Version 1)
Quarter: 2019Q1

REPORT INFORMATION
  Report Type: Other
  Country: ES (occurrence: ES)
  Receive Date: 20190120
  Receipt Date: 20190120
  Transmission Date: 20190417
  Serious: Yes (Hospitalization, Other)
  Sender: FDA-Public Use
  Company Number: ES-DEXPHARM-20190035

PATIENT
  Age: 82 Year
  Sex: Female

DRUGS (3)
  1. CICLOSPORIN [Concomitant]
     Active Substance: CYCLOSPORINE
     Route: 061
  2. DICLOFENAC [Suspect]
     Active Substance: DICLOFENAC
     Route: 061
  3. TOBRAMYCIN. [Suspect]
     Active Substance: TOBRAMYCIN

REACTIONS (2)
  - Conjunctival hyperaemia [Recovering/Resolving]
  - Ulcerative keratitis [Recovered/Resolved with Sequelae]
